FAERS Safety Report 5618766-1 (Version None)
Quarter: 2008Q1

REPORT INFORMATION
  Report Type: 
  Country: None (occurrence: None)
  Receive Date: 20080207
  Receipt Date: 20080130
  Transmission Date: 20080703
  Serious: Yes (Hospitalization, Other)
  Sender: FDA-Public Use
  Company Number: CH-PFIZER INC-2008004825

PATIENT
  Age: 79 Year
  Sex: Male

DRUGS (1)
  1. LYRICA [Suspect]
     Indication: DIABETIC NEUROPATHY
     Route: 048

REACTIONS (6)
  - DEHYDRATION [None]
  - DRUG TOXICITY [None]
  - MYOCLONIC EPILEPSY [None]
  - PNEUMONIA [None]
  - RENAL IMPAIRMENT [None]
  - STUPOR [None]
